FAERS Safety Report 6597077-4 (Version None)
Quarter: 2010Q1

REPORT INFORMATION
  Report Type: 
  Country: None (occurrence: None)
  Receive Date: 20100223
  Receipt Date: 20100215
  Transmission Date: 20100710
  Serious: Yes (Other)
  Sender: FDA-Public Use
  Company Number: B0635228A

PATIENT
  Age: 67 Year
  Sex: Male

DRUGS (2)
  1. AVIDART [Suspect]
     Indication: DRUG USE FOR UNKNOWN INDICATION
     Route: 048
     Dates: start: 20081011, end: 20090915
  2. ALMAX [Concomitant]
     Route: 048
     Dates: start: 20080807

REACTIONS (1)
  - ERECTILE DYSFUNCTION [None]
